FAERS Safety Report 9000358 (Version 1)
Quarter: 2013Q1

REPORT INFORMATION
  Report Type: Spontaneous
  Country: US (occurrence: US)
  Receive Date: 20130107
  Receipt Date: 20130107
  Transmission Date: 20140127
  Serious: Yes (Hospitalization, Other)
  Sender: FDA-Public Use
  Company Number: US-BIOGENIDEC-2013BI000021

PATIENT
  Sex: Female

DRUGS (2)
  1. AVONEX [Suspect]
     Indication: MULTIPLE SCLEROSIS
     Route: 030
     Dates: start: 20090425, end: 20110628
  2. AVONEX [Suspect]
     Indication: MULTIPLE SCLEROSIS
     Route: 030
     Dates: start: 20120705, end: 201210

REACTIONS (8)
  - Somnambulism [Unknown]
  - Urinary tract infection [Unknown]
  - Gait disturbance [Unknown]
  - Rash pruritic [Unknown]
  - Convulsion [Unknown]
  - Fall [Recovered/Resolved]
  - Eye contusion [Unknown]
  - Dysarthria [Unknown]
